FAERS Safety Report 9895713 (Version 1)
Quarter: 2014Q1

REPORT INFORMATION
  Report Type: Spontaneous
  Country: US (occurrence: US)
  Receive Date: 20140213
  Receipt Date: 20140213
  Transmission Date: 20141002
  Serious: No
  Sender: FDA-Public Use
  Company Number: US-BRISTOL-MYERS SQUIBB COMPANY-18972281

PATIENT
  Age: 61 Year
  Sex: Male

DRUGS (6)
  1. ABATACEPT SUBQ INJECTION 125MG/ML [Suspect]
     Indication: RHEUMATOID ARTHRITIS
     Dosage: 1DF=125MG/ML
     Route: 058
  2. PRAVASTATIN SODIUM [Concomitant]
     Dosage: TAB
  3. OMEPRAZOLE [Concomitant]
     Dosage: CAP
  4. PREDNISONE [Concomitant]
  5. DOXYCYCLINE [Concomitant]
     Dosage: TAB
  6. CITRACAL + D [Concomitant]

REACTIONS (1)
  - Dizziness [Unknown]
